FAERS Safety Report 14379147 (Version 2)
Quarter: 2018Q1

REPORT INFORMATION
  Report Type: Spontaneous
  Country: JP (occurrence: JP)
  Receive Date: 20180112
  Receipt Date: 20180205
  Transmission Date: 20180509
  Serious: Yes (Other)
  Sender: FDA-Public Use
  Company Number: JP-CIPLA LTD.-2018JP00359

PATIENT

DRUGS (4)
  1. AMRUBICIN [Suspect]
     Active Substance: AMRUBICIN
     Indication: SMALL CELL LUNG CANCER
     Dosage: UNK, SECOND LINE CHEMOTHERAPY
     Route: 065
  2. CISPLATIN. [Suspect]
     Active Substance: CISPLATIN
     Indication: SMALL CELL LUNG CANCER
     Dosage: UNK, FIRST LINE CHEMOTHERAPY
     Route: 065
  3. IRINOTECAN [Suspect]
     Active Substance: IRINOTECAN
     Indication: SMALL CELL LUNG CANCER
     Dosage: UNK, FIRST LINE CHEMOTHERAPY
     Route: 065
  4. HUMAN ALBUMIN/PACLITAXEL [Suspect]
     Active Substance: PACLITAXEL
     Indication: PRODUCT USED FOR UNKNOWN INDICATION
     Dosage: 100 MG/M2, D 1, 8, 15; Q4WKS
     Route: 065

REACTIONS (8)
  - Vomiting [Unknown]
  - Dysgeusia [Unknown]
  - Nausea [Unknown]
  - Pigmentation disorder [Unknown]
  - Neuropathy peripheral [Unknown]
  - Small cell lung cancer [Unknown]
  - Constipation [Unknown]
  - Decreased appetite [Unknown]
